FAERS Safety Report 9256852 (Version 3)
Quarter: 2014Q2

REPORT INFORMATION
  Report Type: Spontaneous
  Country: US (occurrence: US)
  Receive Date: 20130426
  Receipt Date: 20140401
  Transmission Date: 20141212
  Serious: No
  Sender: FDA-Public Use
  Company Number: US-ASTRAZENECA-2013SE27325

PATIENT
  Age: 63 Year
  Sex: Female
  Weight: 49.9 kg

DRUGS (17)
  1. NEXIUM [Suspect]
     Indication: GASTROOESOPHAGEAL REFLUX DISEASE
     Dosage: ONCE
     Route: 048
  2. NEXIUM [Suspect]
     Indication: GASTROOESOPHAGEAL REFLUX DISEASE
     Route: 048
     Dates: start: 20080514
  3. NEXIUM [Suspect]
     Indication: GASTROOESOPHAGEAL REFLUX DISEASE
     Route: 048
     Dates: start: 20120906
  4. PROZAC [Concomitant]
  5. PREVACID [Concomitant]
     Indication: GASTROOESOPHAGEAL REFLUX DISEASE
     Dosage: TWICE A DAY
  6. ZANTAC [Concomitant]
     Indication: DYSPEPSIA
     Dosage: TWICE A DAY
  7. ZANTAC [Concomitant]
     Indication: GASTROOESOPHAGEAL REFLUX DISEASE
     Dosage: TWICE A DAY
  8. ALKA SELTZER [Concomitant]
     Dosage: TWICE DAILY
  9. ANTIVERT [Concomitant]
     Route: 048
  10. ASPIRIN [Concomitant]
     Route: 048
  11. NORVASC [Concomitant]
     Route: 048
  12. XANAX [Concomitant]
     Route: 048
  13. FOSAMAX [Concomitant]
     Dosage: EVERY SEVEN DAY THREE TIMES PER DAY
     Route: 048
  14. LISINOPRIL [Concomitant]
     Route: 048
  15. HYDROCHLOROTHIAZIDE [Concomitant]
     Route: 048
  16. PROPRANOLOL [Concomitant]
     Dates: start: 20071126
  17. HYDROCHLOROTHIAZID [Concomitant]
     Dates: start: 20080115

REACTIONS (10)
  - Dysstasia [Unknown]
  - Osteoporosis [Unknown]
  - Bone disorder [Unknown]
  - Multiple fractures [Unknown]
  - Back disorder [Unknown]
  - Arthritis [Unknown]
  - Vitamin D deficiency [Unknown]
  - Panic attack [Unknown]
  - Osteopenia [Unknown]
  - Depression [Unknown]
